FAERS Safety Report 7372395-0 (Version None)
Quarter: 2011Q1

REPORT INFORMATION
  Report Type: 
  Country: None (occurrence: None)
  Receive Date: 20110324
  Receipt Date: 20110317
  Transmission Date: 20110831
  Serious: Yes (Other)
  Sender: FDA-Public Use
  Company Number: US-JNJFOC-20100903720

PATIENT
  Sex: Male

DRUGS (7)
  1. LEVAQUIN [Suspect]
     Indication: SINUSITIS
     Route: 048
  2. LEVAQUIN [Suspect]
     Route: 048
  3. LEVAQUIN [Suspect]
     Route: 048
  4. METHYLPREDNISOLONE [Suspect]
     Indication: INFLAMMATION
     Route: 048
  5. LEVAQUIN [Suspect]
     Route: 048
  6. LEVAQUIN [Suspect]
     Indication: PREOPERATIVE CARE
     Route: 048
  7. LEVAQUIN [Suspect]
     Route: 048

REACTIONS (4)
  - ROTATOR CUFF SYNDROME [None]
  - MYALGIA [None]
  - ARTHRALGIA [None]
  - TENDONITIS [None]
